FAERS Safety Report 5868858-7 (Version None)
Quarter: 2008Q3

REPORT INFORMATION
  Report Type: 
  Country: None (occurrence: None)
  Receive Date: 20080902
  Receipt Date: 20080902
  Transmission Date: 20090109
  Serious: Yes (Other)
  Sender: FDA-Public Use
  Company Number: None

PATIENT
  Age: 55 Year
  Sex: Female
  Weight: 86.1834 kg

DRUGS (1)
  1. MAALOX MAX MULTI SYMPTOM NOVARTIS [Suspect]
     Indication: DYSPEPSIA
     Dosage: 4 TABLESPONS 2-4 HRS PO, TWO DOSES OVER 4 HOURS
     Route: 048
     Dates: start: 20080504, end: 20080504

REACTIONS (1)
  - ANGIOEDEMA [None]
